FAERS Safety Report 8861953 (Version 2)
Quarter: 2013Q1

REPORT INFORMATION
  Report Type: Spontaneous
  Country: SG (occurrence: SG)
  Receive Date: 20121025
  Receipt Date: 20130319
  Transmission Date: 20140127
  Serious: Yes (Hospitalization)
  Sender: FDA-Public Use
  Company Number: SG-SANOFI-AVENTIS-2012SA076767

PATIENT
  Age: 63 Year
  Sex: Male
  Weight: 67.5 kg

DRUGS (17)
  1. STILNOX [Suspect]
     Indication: PRODUCT USED FOR UNKNOWN INDICATION
     Route: 065
     Dates: start: 201204
  2. EPOETIN BETA [Concomitant]
     Indication: NEPHROGENIC ANAEMIA
     Dosage: DOSAGE FORM: PRE-FILLED SYRINGE
     Route: 042
     Dates: start: 20110716
  3. CANDESARTAN [Concomitant]
     Dates: start: 20101216, end: 20130131
  4. CANDESARTAN [Concomitant]
     Dosage: DAILY DOSE: 12 MG AND 8 MG
     Dates: start: 20130131
  5. ROSUVASTATIN [Concomitant]
     Dates: start: 20110217
  6. EZETIMIBE [Concomitant]
     Dates: start: 20081016
  7. TRIMETAZIDINE HYDROCHLORIDE [Concomitant]
     Route: 065
     Dates: start: 20120222
  8. ALLOPURINOL [Concomitant]
     Route: 065
     Dates: start: 20100517
  9. NEUROBION [Concomitant]
     Route: 065
     Dates: start: 20090115
  10. CALCIUM ACETATE [Concomitant]
     Route: 065
     Dates: start: 20090917, end: 20130110
  11. CALCIUM ACETATE [Concomitant]
     Dates: start: 20130131
  12. MINERALS NOS [Concomitant]
     Route: 065
     Dates: start: 20090716
  13. HYDROXYZINE [Concomitant]
     Route: 065
     Dates: start: 20090513
  14. PHENYTOIN [Concomitant]
     Route: 065
     Dates: start: 20090413
  15. INSULIN MIXTARD [Concomitant]
     Route: 065
     Dates: start: 2008
  16. ASPIRIN [Concomitant]
     Route: 065
     Dates: start: 20080318
  17. RENA-VITE [Concomitant]
     Route: 065
     Dates: start: 20080318

REACTIONS (3)
  - Ischaemic hepatitis [Recovered/Resolved with Sequelae]
  - Upper respiratory tract infection [Recovered/Resolved]
  - Confusional state [Recovered/Resolved]
